FAERS Safety Report 16807805 (Version 3)
Quarter: 2020Q2

REPORT INFORMATION
  Report Type: Spontaneous
  Country: DE (occurrence: DE)
  Receive Date: 20190915
  Receipt Date: 20200413
  Transmission Date: 20200713
  Serious: Yes (Hospitalization, Other)
  Sender: FDA-Public Use
  Company Number: DE-DEXPHARM-20190712

PATIENT
  Age: 2 Week
  Sex: Female
  Weight: 4.2 kg

DRUGS (5)
  1. LEVETIRACETAM. [Suspect]
     Active Substance: LEVETIRACETAM
     Indication: EPILEPSY
     Dosage: UNK
     Route: 063
     Dates: start: 2016
  2. LAMICTAL [Suspect]
     Active Substance: LAMOTRIGINE
     Indication: EPILEPSY
     Dosage: 50 MG BID
     Route: 064
     Dates: start: 20150826, end: 20160517
  3. LEVETIRACETAM. [Suspect]
     Active Substance: LEVETIRACETAM
     Indication: EPILEPSY
     Dosage: UNK
     Route: 063
     Dates: start: 2016, end: 2016
  4. LEVETIRACETAM. [Suspect]
     Active Substance: LEVETIRACETAM
     Indication: EPILEPSY
     Dosage: UNK
     Route: 064
     Dates: start: 20150826, end: 20160517
  5. LAMICTAL [Suspect]
     Active Substance: LAMOTRIGINE
     Indication: EPILEPSY
     Dosage: 50 MG BID
     Route: 063
     Dates: start: 2016

REACTIONS (7)
  - Exposure via breast milk [Unknown]
  - Selective eating disorder [Not Recovered/Not Resolved]
  - Foetal exposure during pregnancy [Unknown]
  - Urinary tract infection [Unknown]
  - Gastrooesophageal reflux disease [Not Recovered/Not Resolved]
  - Dehydration [Recovered/Resolved]
  - Weight gain poor [Not Recovered/Not Resolved]

NARRATIVE: CASE EVENT DATE: 20150826
